FAERS Safety Report 6106355-4 (Version None)
Quarter: 2009Q1

REPORT INFORMATION
  Report Type: 
  Country: None (occurrence: None)
  Receive Date: 20090306
  Receipt Date: 20090303
  Transmission Date: 20090719
  Serious: No
  Sender: FDA-Public Use
  Company Number: US-B.I. PHARMACEUTICALS,INC./RIDGEFIELD-2009-BP-02626BP

PATIENT
  Age: 82 Year
  Sex: Female

DRUGS (2)
  1. SPIRIVA [Suspect]
     Dosage: 18MCG
     Dates: start: 20060101
  2. ADVAIR HFA [Suspect]
     Route: 055
     Dates: start: 20090114

REACTIONS (2)
  - GLOSSODYNIA [None]
  - STOMATITIS [None]
